FAERS Safety Report 14594234 (Version 6)
Quarter: 2019Q4

REPORT INFORMATION
  Report Type: Report from Study
  Country: BR (occurrence: BR)
  Receive Date: 20180302
  Receipt Date: 20191113
  Transmission Date: 20200122
  Serious: Yes (Hospitalization)
  Sender: FDA-Public Use
  Company Number: BR-BIOGEN-2018BI00531956

PATIENT
  Age: 53 Year
  Sex: Female

DRUGS (4)
  1. AVONEX PEN [Suspect]
     Active Substance: INTERFERON BETA-1A
  2. AVONEX PEN [Suspect]
     Active Substance: INTERFERON BETA-1A
  3. AVONEX PEN [Suspect]
     Active Substance: INTERFERON BETA-1A
  4. AVONEX PEN [Suspect]
     Active Substance: INTERFERON BETA-1A
     Indication: MULTIPLE SCLEROSIS
     Route: 050
     Dates: start: 201001

REACTIONS (20)
  - Escherichia urinary tract infection [Recovered/Resolved]
  - Trigeminal neuralgia [Unknown]
  - Central nervous system lesion [Not Recovered/Not Resolved]
  - Tremor [Recovered/Resolved]
  - Complication associated with device [Not Recovered/Not Resolved]
  - Chills [Recovered/Resolved]
  - Headache [Unknown]
  - Klebsiella infection [Recovered/Resolved]
  - Respiratory disorder [Unknown]
  - Memory impairment [Unknown]
  - Inappropriate schedule of product administration [Unknown]
  - Injection site haemorrhage [Recovered/Resolved]
  - Enteritis infectious [Recovered/Resolved]
  - Decreased immune responsiveness [Unknown]
  - Varicose vein [Not Recovered/Not Resolved]
  - Fatigue [Not Recovered/Not Resolved]
  - Rhinitis allergic [Not Recovered/Not Resolved]
  - Haemorrhoids [Not Recovered/Not Resolved]
  - Malaise [Unknown]
  - Pulmonary mass [Not Recovered/Not Resolved]

NARRATIVE: CASE EVENT DATE: 2014
